FAERS Safety Report 7791563-7 (Version None)
Quarter: 2011Q4

REPORT INFORMATION
  Report Type: 
  Country: None (occurrence: None)
  Receive Date: 20111003
  Receipt Date: 20110922
  Transmission Date: 20120403
  Serious: Yes (Other)
  Sender: FDA-Public Use
  Company Number: US-AMGEN-USASP2011049163

PATIENT
  Sex: Female

DRUGS (1)
  1. EPOGEN [Suspect]
     Indication: RENAL FAILURE CHRONIC
     Dosage: UNK

REACTIONS (7)
  - INSOMNIA [None]
  - FEELING ABNORMAL [None]
  - DECREASED APPETITE [None]
  - PYREXIA [None]
  - DIZZINESS [None]
  - FATIGUE [None]
  - UNRESPONSIVE TO STIMULI [None]
